FAERS Safety Report 21151076 (Version 4)
Quarter: 2022Q4

REPORT INFORMATION
  Report Type: Report from Study
  Country: US (occurrence: US)
  Receive Date: 20220729
  Receipt Date: 20221110
  Transmission Date: 20230113
  Serious: Yes (Death, Hospitalization, Other)
  Sender: FDA-Public Use
  Company Number: US-ABBVIE-22K-163-4417803-00

PATIENT
  Sex: Male

DRUGS (3)
  1. IMBRUVICA [Suspect]
     Active Substance: IBRUTINIB
     Indication: Chronic lymphocytic leukaemia
     Route: 048
     Dates: start: 20220525, end: 20220620
  2. IMBRUVICA [Suspect]
     Active Substance: IBRUTINIB
     Indication: Chronic lymphocytic leukaemia
     Dosage: START DATE 2022
     Route: 048
  3. IMBRUVICA [Suspect]
     Active Substance: IBRUTINIB
     Indication: Chronic lymphocytic leukaemia
     Route: 048
     Dates: start: 20220524, end: 20220915

REACTIONS (14)
  - Death [Fatal]
  - Hospice care [Unknown]
  - Pulmonary oedema [Unknown]
  - Intestinal perforation [Unknown]
  - Intestinal haemorrhage [Unknown]
  - Constipation [Unknown]
  - Haemorrhage [Unknown]
  - Contusion [Unknown]
  - Increased tendency to bruise [Unknown]
  - Malaise [Unknown]
  - Pain [Unknown]
  - Neck pain [Recovering/Resolving]
  - COVID-19 [Unknown]
  - Adverse drug reaction [Unknown]

NARRATIVE: CASE EVENT DATE: 20220101
